FAERS Safety Report 7238075-7 (Version None)
Quarter: 2011Q1

REPORT INFORMATION
  Report Type: 
  Country: None (occurrence: None)
  Receive Date: 20110121
  Receipt Date: 20110114
  Transmission Date: 20110831
  Serious: Yes (Hospitalization)
  Sender: FDA-Public Use
  Company Number: B0693678A

PATIENT
  Sex: Female

DRUGS (9)
  1. ZELITREX [Suspect]
     Dosage: 500MG TWICE PER DAY
     Route: 048
     Dates: start: 20100924
  2. HEXAQUINE [Concomitant]
  3. AMOXICILLIN [Suspect]
     Route: 048
     Dates: start: 20101210, end: 20101217
  4. ATARAX [Concomitant]
  5. SEASONAL INFLUENZA VACCINE [Concomitant]
     Indication: PROPHYLAXIS
     Route: 065
     Dates: start: 20101215, end: 20101215
  6. ROCEPHIN [Concomitant]
     Dosage: 1G PER DAY
     Route: 042
     Dates: start: 20101201, end: 20101205
  7. BACTRIM [Suspect]
     Route: 048
     Dates: start: 20100924, end: 20101208
  8. LEDERFOLINE [Concomitant]
  9. AERIUS [Concomitant]

REACTIONS (6)
  - CHILLS [None]
  - INFLUENZA LIKE ILLNESS [None]
  - LEUKOPENIA [None]
  - PYREXIA [None]
  - AGRANULOCYTOSIS [None]
  - HYPERHIDROSIS [None]
